FAERS Safety Report 13100912 (Version 1)
Quarter: 2017Q1

REPORT INFORMATION
  Report Type: Spontaneous
  Country: US (occurrence: US)
  Receive Date: 20170110
  Receipt Date: 20170110
  Transmission Date: 20170428
  Serious: Yes (Hospitalization)
  Sender: FDA-Public Use
  Company Number: None

PATIENT
  Age: 67 Year
  Sex: Male
  Weight: 120.2 kg

DRUGS (1)
  1. IPILIMUMAB (BMS-734016; MDX-010 TRANSFECTOMA-DERIVED) [Suspect]
     Active Substance: IPILIMUMAB
     Dates: end: 20161122

REACTIONS (6)
  - Confusional state [None]
  - Muscular weakness [None]
  - Thrombophlebitis [None]
  - Sepsis [None]
  - Diarrhoea [None]
  - Cellulitis [None]

NARRATIVE: CASE EVENT DATE: 20161217
